FAERS Safety Report 13822340 (Version 1)
Quarter: 2017Q3

REPORT INFORMATION
  Report Type: Spontaneous
  Country: US (occurrence: US)
  Receive Date: 20170801
  Receipt Date: 20170801
  Transmission Date: 20171127
  Serious: Yes (Disabling)
  Sender: FDA-Public Use
  Company Number: None

PATIENT
  Age: 56 Year
  Sex: Female
  Weight: 70.37 kg

DRUGS (4)
  1. MAGNESIUM [Concomitant]
     Active Substance: MAGNESIUM
  2. PROBIOTICS [Concomitant]
     Active Substance: PROBIOTICS NOS
  3. COD LIVER OIL [Concomitant]
     Active Substance: COD LIVER OIL
  4. CIPRO [Suspect]
     Active Substance: CIPROFLOXACIN HYDROCHLORIDE
     Indication: POSTOPERATIVE CARE
     Route: 048
     Dates: start: 20150722, end: 20150725

REACTIONS (6)
  - Pharyngeal oedema [None]
  - Swollen tongue [None]
  - Hepatic pain [None]
  - Salivary gland enlargement [None]
  - Tremor [None]
  - Hypersensitivity [None]

NARRATIVE: CASE EVENT DATE: 20150722
